FAERS Safety Report 14224541 (Version 1)
Quarter: 2017Q4

REPORT INFORMATION
  Report Type: Spontaneous
  Country: IE (occurrence: US)
  Receive Date: 20171127
  Receipt Date: 20171127
  Transmission Date: 20180321
  Serious: Yes (Death, Hospitalization, Other)
  Sender: FDA-Public Use
  Company Number: US-CONCORDIA PHARMACEUTICALS INC.-GSH201710-005898

PATIENT
  Age: 55 Year
  Sex: Female

DRUGS (8)
  1. PREDNISONE. [Concomitant]
     Active Substance: PREDNISONE
     Indication: SYSTEMIC LUPUS ERYTHEMATOSUS
  2. CYTOXAN [Concomitant]
     Active Substance: CYCLOPHOSPHAMIDE
     Indication: SYSTEMIC LUPUS ERYTHEMATOSUS
  3. ASPIRIN. [Concomitant]
     Active Substance: ASPIRIN
     Indication: CARDIOVASCULAR DISORDER
  4. ISORDIL [Concomitant]
     Active Substance: ISOSORBIDE DINITRATE
     Indication: CARDIOVASCULAR DISORDER
  5. ISORDIL [Concomitant]
     Active Substance: ISOSORBIDE DINITRATE
     Indication: CARDIOVASCULAR DISORDER
  6. HYDRALAZINE [Concomitant]
     Active Substance: HYDRALAZINE HYDROCHLORIDE
     Indication: CARDIOVASCULAR DISORDER
  7. COREG [Concomitant]
     Active Substance: CARVEDILOL
     Indication: CARDIOVASCULAR DISORDER
  8. PLAQUENIL [Suspect]
     Active Substance: HYDROXYCHLOROQUINE SULFATE
     Indication: SYSTEMIC LUPUS ERYTHEMATOSUS
     Route: 048

REACTIONS (17)
  - Acute kidney injury [Fatal]
  - Mitral valve incompetence [Fatal]
  - Cardiac index decreased [Unknown]
  - Blood creatinine increased [Unknown]
  - Cardiomyopathy [Fatal]
  - Cardiac failure congestive [Fatal]
  - Tricuspid valve incompetence [Fatal]
  - Pulmonary hypertension [Fatal]
  - Right ventricular systolic pressure increased [Unknown]
  - Vascular resistance pulmonary increased [Unknown]
  - Ejection fraction decreased [Unknown]
  - Left ventricular dilatation [Unknown]
  - Dilatation atrial [Unknown]
  - Biopsy heart abnormal [Unknown]
  - Aortic valve incompetence [Fatal]
  - Prohormone brain natriuretic peptide increased [Unknown]
  - Myocarditis [Unknown]
